FAERS Safety Report 4665686-5 (Version None)
Quarter: 2005Q2

REPORT INFORMATION
  Report Type: 
  Country: None (occurrence: None)
  Receive Date: 20050517
  Receipt Date: 20050502
  Transmission Date: 20051028
  Serious: Yes (Other)
  Sender: FDA-Public Use
  Company Number: USA050290145

PATIENT
  Age: 62 Year
  Sex: Female
  Weight: 70 kg

DRUGS (12)
  1. CYMBALTA [Suspect]
     Indication: NEUROPATHY PERIPHERAL
     Dosage: 60 MG DAY
     Dates: start: 20050125, end: 20050125
  2. NEURONTIN (GABAPENTIN PFIZER) [Concomitant]
  3. DARVOCET-N 100 [Concomitant]
  4. LANOXIN (DIGOXIN -SANDOZ) [Concomitant]
  5. AMBIEN [Concomitant]
  6. ESTRATAB [Concomitant]
  7. NULEV (HYOSCYAMINE SULFATE) [Concomitant]
  8. ZETIA [Concomitant]
  9. LASIX [Concomitant]
  10. GLUCOPHAGE [Concomitant]
  11. ATACAND [Concomitant]
  12. ULTRACET [Concomitant]

REACTIONS (2)
  - BLOOD PRESSURE INCREASED [None]
  - FLUSHING [None]
